FAERS Safety Report 4277912-5 (Version None)
Quarter: 2004Q1

REPORT INFORMATION
  Report Type: 
  Country: None (occurrence: None)
  Receive Date: 20040123
  Receipt Date: 20031125
  Transmission Date: 20041129
  Serious: Yes (Hospitalization)
  Sender: FDA-Public Use
  Company Number: FR-GLAXOSMITHKLINE-B0316081A

PATIENT
  Age: 79 Year
  Sex: Male

DRUGS (1)
  1. KREDEX [Suspect]
     Indication: CARDIAC FAILURE
     Dosage: 3.125MG PER DAY
     Route: 048
     Dates: start: 20030701, end: 20030724

REACTIONS (2)
  - MESOTHELIOMA [None]
  - PLEURAL EFFUSION [None]
